FAERS Safety Report 6115382-2 (Version None)
Quarter: 2009Q1

REPORT INFORMATION
  Report Type: 
  Country: None (occurrence: None)
  Receive Date: 20090313
  Receipt Date: 20090304
  Transmission Date: 20090719
  Serious: Yes (Hospitalization, Other)
  Sender: FDA-Public Use
  Company Number: PHHY2008JP31796

PATIENT
  Sex: Female
  Weight: 48 kg

DRUGS (2)
  1. VOLTAREN [Suspect]
     Indication: FEMORAL NECK FRACTURE
     Dosage: UNK
     Route: 054
     Dates: start: 20070701, end: 20080101
  2. VOLTAREN [Suspect]
     Dosage: 25 MG
     Route: 054
     Dates: start: 20080122, end: 20080404

REACTIONS (12)
  - BLOOD ALKALINE PHOSPHATASE INCREASED [None]
  - ENTEROCOLITIS [None]
  - EROSIVE DUODENITIS [None]
  - GASTRITIS [None]
  - GASTROINTESTINAL EROSION [None]
  - HYPOPROTEINAEMIA [None]
  - JEJUNAL ULCER [None]
  - OEDEMA PERIPHERAL [None]
  - PROTEIN ALBUMIN RATIO [None]
  - PROTEIN-LOSING GASTROENTEROPATHY [None]
  - REFLUX OESOPHAGITIS [None]
  - SMALL INTESTINE ULCER [None]
